FAERS Safety Report 10244496 (Version 1)
Quarter: 2014Q2

REPORT INFORMATION
  Report Type: Spontaneous
  Country: US (occurrence: US)
  Receive Date: 20140618
  Receipt Date: 20140618
  Transmission Date: 20141212
  Serious: Yes (Hospitalization)
  Sender: FDA-Public Use
  Company Number: US-GLAXOSMITHKLINE-A1077427A

PATIENT
  Age: 53 Year
  Sex: Female

DRUGS (2)
  1. BENLYSTA [Suspect]
     Indication: SYSTEMIC LUPUS ERYTHEMATOSUS
     Dosage: 120MG EVERY 28 DAYS
     Route: 065
     Dates: start: 20140226, end: 20140326
  2. CONTRAST AGENT [Suspect]

REACTIONS (11)
  - Cerebrovascular accident [Unknown]
  - Balance disorder [Unknown]
  - Nervous system disorder [Unknown]
  - Ill-defined disorder [Unknown]
  - Anaphylactic shock [Unknown]
  - Brain injury [Unknown]
  - Cognitive disorder [Unknown]
  - Hypersensitivity [Unknown]
  - Progressive multifocal leukoencephalopathy [Unknown]
  - Speech disorder [Unknown]
  - Amnesia [Unknown]
